FAERS Safety Report 4370453-6 (Version None)
Quarter: 2004Q2

REPORT INFORMATION
  Report Type: 
  Country: None (occurrence: None)
  Receive Date: 20040603
  Receipt Date: 20031230
  Transmission Date: 20050107
  Serious: No
  Sender: FDA-Public Use
  Company Number: US-BRISTOL-MYERS SQUIBB COMPANY-12466827

PATIENT
  Age: 52 Year
  Sex: Female
  Weight: 91 kg

DRUGS (4)
  1. ABILIFY [Suspect]
     Indication: BIPOLAR DISORDER
     Dosage: 2 TABLETS ONCE DAILY AT BEDTIME.  DECREASED TO 15 MG/DAY IN JAN-04.
     Route: 048
     Dates: start: 20031223
  2. DEPAKOTE [Concomitant]
  3. WELLBUTRIN [Concomitant]
  4. KLONOPIN [Concomitant]

REACTIONS (7)
  - ABNORMAL BEHAVIOUR [None]
  - AGITATION [None]
  - INSOMNIA [None]
  - OEDEMA PERIPHERAL [None]
  - SLEEP TALKING [None]
  - SLEEP WALKING [None]
  - SWELLING FACE [None]
